FAERS Safety Report 10414996 (Version 1)
Quarter: 2014Q3

REPORT INFORMATION
  Report Type: Spontaneous
  Country: US (occurrence: None)
  Receive Date: 20140827
  Receipt Date: 20140827
  Transmission Date: 20150326
  Serious: Yes (Other)
  Sender: FDA-Public Use
  Company Number: None

PATIENT
  Age: 34 Year
  Sex: Female
  Weight: 71.67 kg

DRUGS (1)
  1. CARBOPLATIN 600MG/60ML HOSPIRA [Suspect]
     Active Substance: CARBOPLATIN
     Indication: BREAST CANCER
     Route: 042
     Dates: start: 20140806, end: 20140822

REACTIONS (6)
  - Pruritus [None]
  - Burning sensation [None]
  - Abdominal pain [None]
  - Nausea [None]
  - Erythema [None]
  - Vomiting [None]

NARRATIVE: CASE EVENT DATE: 20140822
